FAERS Safety Report 6120544-4 (Version None)
Quarter: 2009Q1

REPORT INFORMATION
  Report Type: 
  Country: None (occurrence: None)
  Receive Date: 20090317
  Receipt Date: 20090312
  Transmission Date: 20090719
  Serious: No
  Sender: FDA-Public Use
  Company Number: US-JNJFOC-20090303540

PATIENT
  Sex: Male
  Weight: 99.79 kg

DRUGS (3)
  1. DURAGESIC-100 [Suspect]
     Indication: BACK PAIN
     Route: 062
  2. LORAZEPAM [Concomitant]
     Indication: NAUSEA
     Route: 048
  3. OXYCODONE HCL [Concomitant]
     Indication: PAIN
     Dosage: 5 MG AS NEEDED
     Route: 048

REACTIONS (4)
  - FATIGUE [None]
  - INCORRECT DRUG ADMINISTRATION DURATION [None]
  - NAUSEA [None]
  - WRONG TECHNIQUE IN DRUG USAGE PROCESS [None]
